FAERS Safety Report 5451825-5 (Version None)
Quarter: 2007Q3

REPORT INFORMATION
  Report Type: 
  Country: None (occurrence: None)
  Receive Date: 20070912
  Receipt Date: 20070828
  Transmission Date: 20080115
  Serious: Yes (Life-Threatening)
  Sender: FDA-Public Use
  Company Number: 100#08#2007-03368

PATIENT
  Age: 5 Year
  Sex: Male

DRUGS (4)
  1. CARBOPLATIN [Suspect]
     Indication: RETINOBLASTOMA UNILATERAL
     Dosage: 1680 MG/M2
  2. VINCRISTINE [Suspect]
     Indication: RETINOBLASTOMA UNILATERAL
     Dosage: 4.5 MG/M2
  3. CYCLOPHOSPHAMIDE [Suspect]
     Indication: RETINOBLASTOMA UNILATERAL
     Dosage: 3000 MG/M2
  4. ETOPOSIDE [Suspect]
     Indication: RETINOBLASTOMA UNILATERAL
     Dosage: 360 MG/M2

REACTIONS (1)
  - ACUTE MYELOID LEUKAEMIA [None]
